FAERS Safety Report 13149926 (Version 2)
Quarter: 2017Q1

REPORT INFORMATION
  Report Type: Spontaneous
  Country: KR (occurrence: KR)
  Receive Date: 20170125
  Receipt Date: 20170126
  Transmission Date: 20170428
  Serious: Yes (Hospitalization, Other)
  Sender: FDA-Public Use
  Company Number: KR-009507513-1611KOR006692

PATIENT
  Age: 57 Year
  Sex: Male
  Weight: 95.6 kg

DRUGS (13)
  1. DEXAMETHASONE DAEWON [Concomitant]
     Indication: PROPHYLAXIS OF NAUSEA AND VOMITING
     Dosage: 10 MG, QD
     Route: 042
     Dates: start: 20161014, end: 20161014
  2. MANNITOL DAIHAN [Concomitant]
     Indication: PROPHYLAXIS
     Dosage: STRENGTH: 15% /100ML, QD
     Route: 042
     Dates: start: 20161014, end: 20161014
  3. EMEND (FOSAPREPITANT DIMEGLUMINE) [Suspect]
     Active Substance: FOSAPREPITANT DIMEGLUMINE
     Dosage: 150 MG, ONCE
     Route: 042
     Dates: start: 20161104, end: 20161104
  4. MACPERAN [Concomitant]
     Active Substance: METOCLOPRAMIDE HYDROCHLORIDE
     Indication: DYSPEPSIA
     Dosage: 1 TABLET, BID
     Route: 048
     Dates: start: 20161015, end: 20161021
  5. LASIX [Concomitant]
     Active Substance: FUROSEMIDE
     Indication: PROPHYLAXIS
     Dosage: STRENGTH: 20MG/2ML; 20 MG, QD
     Route: 042
     Dates: start: 20161014, end: 20161014
  6. MECKOOL [Concomitant]
     Indication: NAUSEA
     Dosage: STRENGTH: 4.231MG/ML; 10 MG, QD
     Route: 042
     Dates: start: 20161015, end: 20161015
  7. EMEND (FOSAPREPITANT DIMEGLUMINE) [Suspect]
     Active Substance: FOSAPREPITANT DIMEGLUMINE
     Indication: PROPHYLAXIS OF NAUSEA AND VOMITING
     Dosage: 150 MG, ONCE
     Route: 042
     Dates: start: 20161014, end: 20161014
  8. ALOXI [Concomitant]
     Active Substance: PALONOSETRON HYDROCHLORIDE
     Indication: NAUSEA
     Dosage: 0.25 MG, QD
     Route: 042
     Dates: start: 20161014, end: 20161014
  9. EMEND (FOSAPREPITANT DIMEGLUMINE) [Suspect]
     Active Substance: FOSAPREPITANT DIMEGLUMINE
     Dosage: 150 MG, ONCE
     Route: 042
     Dates: start: 20161219, end: 20161219
  10. CISPLATIN. [Concomitant]
     Active Substance: CISPLATIN
     Indication: LUNG CARCINOMA CELL TYPE UNSPECIFIED STAGE 0
     Dosage: STRENGTH: 50MG/100ML; 144.2 MG QD, CYCLE 1
     Route: 042
     Dates: start: 20161014, end: 20161014
  11. EMEND (FOSAPREPITANT DIMEGLUMINE) [Suspect]
     Active Substance: FOSAPREPITANT DIMEGLUMINE
     Dosage: 150 MG, ONCE
     Route: 042
     Dates: start: 20161125, end: 20161125
  12. EPS [Concomitant]
     Indication: LUNG CARCINOMA CELL TYPE UNSPECIFIED STAGE 0
     Dosage: STRENGTH: 100MG/5ML; 200 MG, QD, CYCLE 1
     Route: 042
     Dates: start: 20161014, end: 20161014
  13. DEXAMETHASONE BUKWANG [Concomitant]
     Indication: PROPHYLAXIS OF NAUSEA AND VOMITING
     Dosage: 3.75 MG BID
     Route: 048
     Dates: start: 20161015, end: 20161016

REACTIONS (2)
  - Febrile neutropenia [Recovered/Resolved]
  - Productive cough [Recovered/Resolved]

NARRATIVE: CASE EVENT DATE: 20161025
